FAERS Safety Report 12839804 (Version 1)
Quarter: 2016Q4

REPORT INFORMATION
  Report Type: Spontaneous
  Country: US (occurrence: US)
  Receive Date: 20161012
  Receipt Date: 20161012
  Transmission Date: 20170207
  Serious: No
  Sender: FDA-Public Use
  Company Number: US-LPDUSPRD-20160694

PATIENT

DRUGS (2)
  1. CIDOFOVIR. [Suspect]
     Active Substance: CIDOFOVIR
     Dosage: DOSE NOT PROVIDED
     Route: 065
  2. GANCICLOVIR INJECTION (0517-1945-01) [Suspect]
     Active Substance: GANCICLOVIR
     Dosage: DOSE NOT PROVIDED
     Route: 065

REACTIONS (1)
  - Drug resistance [Unknown]
